FAERS Safety Report 6248160-4 (Version None)
Quarter: 2009Q2

REPORT INFORMATION
  Report Type: 
  Country: None (occurrence: None)
  Receive Date: 20090624
  Receipt Date: 20090624
  Transmission Date: 20091009
  Serious: Yes (Other)
  Sender: FDA-Public Use
  Company Number: None

PATIENT
  Sex: Female

DRUGS (3)
  1. TERAZOSIN HCL [Suspect]
     Indication: HYPERTENSION
     Dosage: 5MG 1/DAY
     Dates: start: 20090411, end: 20090506
  2. AMLODIPINE [Suspect]
     Indication: HYPERTENSION
     Dosage: 10MG 1/DAY
     Dates: start: 20090331, end: 20090526
  3. DILTIAZEM [Suspect]

REACTIONS (4)
  - DYSPNOEA [None]
  - HAEMOGLOBIN DECREASED [None]
  - HEART RATE INCREASED [None]
  - JOINT SWELLING [None]
